FAERS Safety Report 6288007-3 (Version None)
Quarter: 2009Q3

REPORT INFORMATION
  Report Type: 
  Country: None (occurrence: None)
  Receive Date: 20090729
  Receipt Date: 20090718
  Transmission Date: 20100115
  Serious: Yes (Hospitalization, Other)
  Sender: FDA-Public Use
  Company Number: CN-ROCHE-639266

PATIENT
  Age: 82 Year
  Sex: Male
  Weight: 49 kg

DRUGS (4)
  1. XELODA [Suspect]
     Indication: GASTRIC CANCER
     Route: 048
     Dates: start: 20081001, end: 20081115
  2. XELODA [Suspect]
     Route: 048
     Dates: start: 20090623, end: 20090624
  3. XELODA [Suspect]
     Route: 048
     Dates: start: 20090625
  4. CISPLATIN [Concomitant]
     Dosage: INTRAPERITONEAL PERFUSION OF CICPLATIN (3 TIMES PER CYCLE)
     Route: 033
     Dates: start: 20090624

REACTIONS (6)
  - DECREASED APPETITE [None]
  - DIARRHOEA [None]
  - LUNG INFECTION [None]
  - METASTASES TO KIDNEY [None]
  - METASTASES TO LIVER [None]
  - PIGMENTATION DISORDER [None]
